FAERS Safety Report 9791839 (Version 1)
Quarter: 2014Q1

REPORT INFORMATION
  Report Type: Spontaneous
  Country: FR (occurrence: FR)
  Receive Date: 20140102
  Receipt Date: 20140102
  Transmission Date: 20141002
  Serious: Yes (Hospitalization)
  Sender: FDA-Public Use
  Company Number: FR-UCBSA-106770

PATIENT
  Age: 65 Year
  Sex: Female

DRUGS (7)
  1. KEPPRA [Suspect]
     Dosage: 500MG
     Route: 048
     Dates: start: 20130318, end: 20130327
  2. IMOVANE [Concomitant]
     Dosage: 7.5MG SEALED FILM COATED TABLET
  3. PREVISCAN [Concomitant]
     Dosage: 20MG SEALED TABLET
  4. FORLAX [Concomitant]
     Dosage: 10G SACHET
     Dates: end: 20130325
  5. FRESUBIN [Concomitant]
     Dosage: 1 VIAL AT 16HR
     Dates: end: 20130325
  6. LEPTICUR [Concomitant]
     Dosage: 10MG AS NEEDED
     Dates: end: 20130325
  7. TERCIAN [Concomitant]
     Dosage: 10DROPS IN THE MORNING AND AT NOON, 30 DROPS IN THE EVENING
     Dates: end: 20130325

REACTIONS (3)
  - Jaundice cholestatic [Recovered/Resolved]
  - Hepatocellular injury [Recovered/Resolved]
  - Rash [Unknown]
